FAERS Safety Report 10464832 (Version 5)
Quarter: 2015Q1

REPORT INFORMATION
  Report Type: Spontaneous
  Country: JP (occurrence: JP)
  Receive Date: 20140919
  Receipt Date: 20150121
  Transmission Date: 20150720
  Serious: Yes (Other)
  Sender: FDA-Public Use
  Company Number: JP-OTSUKA-JP-2014-17357

PATIENT

DRUGS (11)
  1. FRANDOL [Concomitant]
     Active Substance: ISOSORBIDE DINITRATE
     Indication: ANGINA PECTORIS
     Dosage: 40 MG MILLIGRAM(S), DAILY DOSE
     Route: 061
     Dates: start: 20140708
  2. SAMSCA [Suspect]
     Active Substance: TOLVAPTAN
     Dosage: 3.75 MG MILLIGRAM(S), DAILY DOSE
     Route: 048
     Dates: start: 20140825
  3. PARIET [Concomitant]
     Active Substance: RABEPRAZOLE SODIUM
     Indication: CHRONIC GASTRITIS
     Dosage: 10 MG MILLIGRAM(S), QAM
     Route: 048
     Dates: start: 20140708
  4. MAGNESIUM OXIDE. [Concomitant]
     Active Substance: MAGNESIUM OXIDE
     Indication: CONSTIPATION
     Dosage: 0.33 G GRAM(S), TID
     Route: 048
     Dates: start: 20140708
  5. PANTOSIN [Concomitant]
     Active Substance: PANTETHINE
     Indication: CONSTIPATION
     Dosage: 0.33 G GRAM(S), TID
     Route: 048
     Dates: start: 20140708
  6. MAINTATE [Concomitant]
     Active Substance: BISOPROLOL FUMARATE
     Indication: CARDIAC FAILURE
     Dosage: 2.5 MG MILLIGRAM(S), QAM
     Route: 048
     Dates: start: 20140708
  7. ALDACTONE [Concomitant]
     Active Substance: SPIRONOLACTONE
     Indication: PRODUCT USED FOR UNKNOWN INDICATION
     Dosage: 12.5 MG MILLIGRAM(S), DAILY DOSE
     Route: 048
  8. SAMSCA [Suspect]
     Active Substance: TOLVAPTAN
     Indication: OEDEMA DUE TO CARDIAC DISEASE
     Dosage: 3.75 MG MILLIGRAM(S), QD
     Route: 048
     Dates: start: 20140708, end: 20140729
  9. SAMSCA [Suspect]
     Active Substance: TOLVAPTAN
     Dosage: 3.75 MG MILLIGRAM(S), DAILY DOSE
     Route: 048
     Dates: start: 20140812, end: 20140815
  10. DIART [Concomitant]
     Active Substance: AZOSEMIDE
     Indication: CARDIAC FAILURE
     Dosage: 60 MG MILLIGRAM(S), QAM
     Route: 048
     Dates: start: 20140708
  11. LANIRAPID [Concomitant]
     Active Substance: METILDIGOXIN
     Indication: CARDIAC FAILURE
     Dosage: 0.1 MG MILLIGRAM(S), QAM
     Route: 048
     Dates: start: 20140708

REACTIONS (2)
  - Thrombocytopenia [Recovering/Resolving]
  - Epistaxis [Recovering/Resolving]

NARRATIVE: CASE EVENT DATE: 20140725
